FAERS Safety Report 4358617-9 (Version None)
Quarter: 2004Q2

REPORT INFORMATION
  Report Type: 
  Country: None (occurrence: None)
  Receive Date: 20040512
  Receipt Date: 20040512
  Transmission Date: 20050107
  Serious: Yes (Hospitalization)
  Sender: FDA-Public Use
  Company Number: None

PATIENT
  Age: 84 Year
  Sex: Female
  Weight: 56 kg

DRUGS (7)
  1. COUMADIN [Suspect]
     Indication: ANTICOAGULANT THERAPY
     Dosage: 5 MG OD
  2. FLORINEF [Concomitant]
  3. BUMETANIDE [Concomitant]
  4. MILRIDONE [Concomitant]
  5. DESMOPRESSIN [Concomitant]
  6. VANCOMYCIN [Concomitant]
  7. ZOSYN [Concomitant]

REACTIONS (3)
  - COAGULOPATHY [None]
  - GASTROINTESTINAL HAEMORRHAGE [None]
  - INTERNATIONAL NORMALISED RATIO INCREASED [None]
